FAERS Safety Report 9504803 (Version 1)
Quarter: 2013Q3

REPORT INFORMATION
  Report Type: Spontaneous
  Country: GB (occurrence: GB)
  Receive Date: 20130906
  Receipt Date: 20130906
  Transmission Date: 20140515
  Serious: Yes (Other)
  Sender: FDA-Public Use
  Company Number: GB-TEVA-430413USA

PATIENT
  Sex: Male

DRUGS (2)
  1. BENDAMUSTINE [Suspect]
     Indication: WALDENSTROM^S MACROGLOBULINAEMIA
     Route: 042
  2. OFATUMUMAB [Suspect]
     Indication: WALDENSTROM^S MACROGLOBULINAEMIA

REACTIONS (3)
  - Waldenstrom^s macroglobulinaemia [Unknown]
  - Condition aggravated [Unknown]
  - Off label use [Unknown]
